FAERS Safety Report 8728734 (Version 2)
Quarter: 2012Q4

REPORT INFORMATION
  Report Type: Report from Study
  Country: DE (occurrence: DE)
  Receive Date: 20120817
  Receipt Date: 20120830
  Transmission Date: 20130627
  Serious: Yes (Death)
  Sender: FDA-Public Use
  Company Number: DE-EISAI INC-E7389-02873-SOL-DE

PATIENT
  Sex: Female

DRUGS (2)
  1. HALAVEN [Suspect]
     Indication: METASTATIC BREAST CANCER
     Route: 041
     Dates: start: 20111107
  2. HALAVEN [Suspect]
     Route: 041
     Dates: end: 20120423

REACTIONS (4)
  - Nausea [Unknown]
  - Vomiting [Unknown]
  - Neoplasm progression [None]
  - Breast cancer metastatic [None]
